FAERS Safety Report 9903010 (Version 2)
Quarter: 2014Q2

REPORT INFORMATION
  Report Type: Spontaneous
  Country: US (occurrence: US)
  Receive Date: 20140217
  Receipt Date: 20140522
  Transmission Date: 20141212
  Serious: Yes (Other)
  Sender: FDA-Public Use
  Company Number: PHEH2014US002487

PATIENT
  Age: 4 Year
  Sex: Female

DRUGS (11)
  1. TRILEPTAL [Suspect]
     Dosage: UNK UKN, UNK
  2. KEPPRA [Suspect]
     Dosage: UNK UKN, UNK
  3. LAMICTAL [Suspect]
     Dosage: UNK UKN, UNK
  4. TOPAMAX [Suspect]
     Dosage: UNK UKN, UNK
  5. DEPAKOTE [Suspect]
     Dosage: UNK UKN, UNK
  6. VALIUM [Suspect]
     Dosage: UNK UKN, UNK
  7. ONFI [Suspect]
     Dosage: UNK UKN, UNK
  8. LEUKOVORIN [Suspect]
     Dosage: UNK UKN, UNK
  9. PHENOBARBITAL [Suspect]
     Dosage: UNK UKN, UNK
  10. CARBATROL [Suspect]
     Dosage: UNK UKN, UNK
  11. VITAMIN B6 [Suspect]
     Dosage: (HIGH DOSE), UNK

REACTIONS (7)
  - Hepatic failure [Unknown]
  - Anaemia [Unknown]
  - Gene mutation [Unknown]
  - Convulsion [Not Recovered/Not Resolved]
  - Stevens-Johnson syndrome [Unknown]
  - Skin discolouration [Unknown]
  - Drug ineffective [Unknown]
